FAERS Safety Report 13557777 (Version 3)
Quarter: 2018Q1

REPORT INFORMATION
  Report Type: Report from Study
  Country: US (occurrence: US)
  Receive Date: 20170517
  Receipt Date: 20180323
  Transmission Date: 20180508
  Serious: Yes (Death)
  Sender: FDA-Public Use
  Company Number: US-ACADIA PHARMACEUTICALS INC.-ACA-2017-003135

PATIENT
  Age: 69 Year
  Sex: Female

DRUGS (1)
  1. NUPLAZID [Suspect]
     Active Substance: PIMAVANSERIN TARTRATE
     Indication: PARKINSON^S DISEASE
     Dosage: 34 MG, QD
     Route: 048
     Dates: start: 20170223, end: 20180316

REACTIONS (6)
  - Death [Fatal]
  - Platelet count decreased [Unknown]
  - Peripheral swelling [Unknown]
  - Headache [Unknown]
  - Contusion [Unknown]
  - Confusional state [Unknown]

NARRATIVE: CASE EVENT DATE: 20170417
